FAERS Safety Report 7070748-1 (Version None)
Quarter: 2010Q4

REPORT INFORMATION
  Report Type: 
  Country: None (occurrence: None)
  Receive Date: 20101029
  Receipt Date: 20101014
  Transmission Date: 20110411
  Serious: Yes (Hospitalization, Other)
  Sender: FDA-Public Use
  Company Number: US-BAYER-201015989NA

PATIENT
  Age: 51 Year
  Sex: Female
  Weight: 65 kg

DRUGS (4)
  1. YASMIN [Suspect]
     Indication: PREMENSTRUAL SYNDROME
     Route: 048
     Dates: start: 20050101, end: 20060101
  2. YAZ [Suspect]
     Indication: PREMENSTRUAL SYNDROME
     Route: 048
  3. MOTRIN [Concomitant]
     Dates: start: 20060101, end: 20080101
  4. NAPROXEN [Concomitant]
     Dates: start: 20060101, end: 20080101

REACTIONS (5)
  - DEEP VEIN THROMBOSIS [None]
  - MENTAL DISORDER [None]
  - OEDEMA PERIPHERAL [None]
  - PAIN IN EXTREMITY [None]
  - PULMONARY EMBOLISM [None]
